FAERS Safety Report 8531304 (Version 5)
Quarter: 2013Q4

REPORT INFORMATION
  Report Type: Spontaneous
  Country: FR (occurrence: FR)
  Receive Date: 20120426
  Receipt Date: 20131111
  Transmission Date: 20140711
  Serious: Yes (Other)
  Sender: FDA-Public Use
  Company Number: FR-PFIZER INC-2012095656

PATIENT
  Age: 67 Year
  Sex: Male

DRUGS (13)
  1. AMLOR [Suspect]
     Indication: HYPERTENSION
     Dosage: 5 MG, UNK
     Route: 048
     Dates: start: 2004
  2. INIPOMP [Suspect]
     Dosage: 40 MG, 1X/DAY
     Route: 048
     Dates: start: 2004, end: 20120307
  3. KARDEGIC [Suspect]
     Indication: CONGESTIVE CARDIOMYOPATHY
     Dosage: 75 MG, 1X/DAY
     Route: 048
     Dates: start: 2004, end: 20120307
  4. VASTAREL [Suspect]
     Indication: CONGESTIVE CARDIOMYOPATHY
     Dosage: 2 DF, 1X/DAY
     Route: 048
     Dates: start: 2004, end: 20120307
  5. MOLSIDOMINE [Suspect]
     Indication: CONGESTIVE CARDIOMYOPATHY
     Dosage: 1 DF, 3X/DAY
     Route: 048
     Dates: start: 2004, end: 201203
  6. MOLSIDOMINE [Suspect]
     Dosage: 1 DF, 2X/DAY
     Route: 048
     Dates: start: 201203
  7. CARDENSIEL [Suspect]
     Indication: CONGESTIVE CARDIOMYOPATHY
     Dosage: 2.5 MG, 1X/DAY
     Route: 048
     Dates: start: 2004
  8. TAREG [Suspect]
     Indication: HYPERTENSION
     Dosage: 80 MG, 1X/DAY
     Route: 048
     Dates: start: 2004
  9. CRESTOR [Suspect]
     Indication: DYSLIPIDAEMIA
     Dosage: 5 MG, 1X/DAY
     Route: 048
     Dates: start: 2004, end: 2013
  10. EZETROL [Suspect]
     Indication: DYSLIPIDAEMIA
     Dosage: 10 MG, 1X/DAY
     Route: 048
     Dates: start: 2004
  11. IKOREL [Suspect]
     Indication: CONGESTIVE CARDIOMYOPATHY
     Dosage: 20 MG, 2X/DAY
     Route: 048
     Dates: start: 2004
  12. PREVISCAN [Suspect]
     Indication: ATRIAL FIBRILLATION
     Dosage: 20 MG, 1X/DAY
     Route: 048
     Dates: start: 2004
  13. PLAVIX [Concomitant]
     Dosage: UNK
     Dates: start: 20120307

REACTIONS (1)
  - Hyperhidrosis [Recovered/Resolved]
